FAERS Safety Report 12372651 (Version 3)
Quarter: 2017Q2

REPORT INFORMATION
  Report Type: Spontaneous
  Country: US (occurrence: US)
  Receive Date: 20160516
  Receipt Date: 20170530
  Transmission Date: 20170830
  Serious: Yes (Death)
  Sender: FDA-Public Use
  Company Number: US-PFIZER INC-2016238594

PATIENT
  Age: 63 Year
  Sex: Male
  Weight: 102 kg

DRUGS (7)
  1. LEVOPHED [Suspect]
     Active Substance: NOREPINEPHRINE BITARTRATE
     Indication: CARDIAC ARREST
     Dosage: TWICE
     Route: 042
     Dates: start: 20160325
  2. CALCIUM BICARBONATE [Suspect]
     Active Substance: CALCIUM BICARBONATE
     Indication: CARDIAC ARREST
     Dosage: UNK
     Dates: start: 20160325, end: 20160325
  3. LIDOCAINE HCL [Suspect]
     Active Substance: LIDOCAINE HYDROCHLORIDE
     Indication: CARDIAC ARREST
     Dosage: 1 MG, UNK
     Route: 042
     Dates: start: 20160325, end: 20160325
  4. VASOPRESSIN. [Suspect]
     Active Substance: VASOPRESSIN
     Indication: CARDIAC ARREST
     Dosage: UNK
     Dates: start: 20160325, end: 20160325
  5. ATROPINE SULFATE. [Suspect]
     Active Substance: ATROPINE SULFATE
     Indication: CARDIAC ARREST
     Dosage: 1 MG, UNK, ONCE
     Route: 042
     Dates: start: 20160325, end: 20160325
  6. EPINEPHRINE. [Suspect]
     Active Substance: EPINEPHRINE
     Indication: CARDIAC ARREST
     Dosage: UNK
     Dates: start: 20160325, end: 20160325
  7. AMIODARONE HCL [Suspect]
     Active Substance: AMIODARONE HYDROCHLORIDE
     Indication: CARDIAC ARREST
     Dosage: (300 UNIT OF MEASURE NOT REPORTED, TWICE)
     Route: 042
     Dates: start: 20160325, end: 20160325

REACTIONS (1)
  - Drug ineffective [Fatal]

NARRATIVE: CASE EVENT DATE: 20160325
